FAERS Safety Report 16280851 (Version 1)
Quarter: 2020Q3

REPORT INFORMATION
  Report Type: Spontaneous
  Country: US (occurrence: US)
  Receive Date: 20190507
  Receipt Date: 20190507
  Transmission Date: 20201104
  Serious: Yes (Other)
  Sender: FDA-Public Use
  Company Number: US-ROCHE-2310705

PATIENT
  Age: 63 Year
  Sex: Female
  Weight: 58.11 kg

DRUGS (1)
  1. IBANDRONIC ACID. [Suspect]
     Active Substance: IBANDRONIC ACID
     Indication: OSTEOPOROSIS
     Dosage: UNSURE IF BRAND BONIVA OR GENERIC?LAST DOSE WAS ON 16/APR/2019,
     Route: 048
     Dates: start: 20181105

REACTIONS (11)
  - Ear infection [Recovered/Resolved]
  - Dyspepsia [Not Recovered/Not Resolved]
  - Influenza like illness [Recovered/Resolved]
  - Arrhythmia [Recovering/Resolving]
  - Oropharyngeal pain [Recovered/Resolved]
  - Pyrexia [Recovered/Resolved]
  - Nasopharyngitis [Recovered/Resolved]
  - Asthma [Recovered/Resolved]
  - Gastrointestinal disorder [Not Recovered/Not Resolved]
  - Frequent bowel movements [Not Recovered/Not Resolved]
  - Diarrhoea [Not Recovered/Not Resolved]

NARRATIVE: CASE EVENT DATE: 20190201
